FAERS Safety Report 26096893 (Version 1)
Quarter: 2025Q4

REPORT INFORMATION
  Report Type: Spontaneous
  Country: EU (occurrence: EU)
  Receive Date: 20251127
  Receipt Date: 20251127
  Transmission Date: 20260118
  Serious: Yes (Death, Other)
  Sender: ROCHE
  Company Number: None

PATIENT
  Age: 59 Year
  Sex: Female

DRUGS (20)
  1. TOCILIZUMAB [Suspect]
     Active Substance: TOCILIZUMAB
     Indication: Follicular lymphoma stage III
     Dosage: 3000 MILLIGRAM
     Route: 042
  2. TOCILIZUMAB [Suspect]
     Active Substance: TOCILIZUMAB
     Dosage: 300 MILLIGRAM
     Route: 042
  3. OBINUTUZUMAB [Suspect]
     Active Substance: OBINUTUZUMAB
     Indication: Follicular lymphoma stage III
     Dosage: UNK
     Route: 065
  4. ATEZOLIZUMAB [Suspect]
     Active Substance: ATEZOLIZUMAB
     Indication: Follicular lymphoma stage III
     Dosage: UNK
     Route: 065
  5. POLATUZUMAB VEDOTIN [Suspect]
     Active Substance: POLATUZUMAB VEDOTIN
     Indication: Follicular lymphoma stage III
     Dosage: UNK
     Route: 065
  6. TACROLIMUS [Suspect]
     Active Substance: TACROLIMUS
     Indication: Follicular lymphoma stage III
     Dosage: 2 MILLIGRAM, BID
     Route: 048
  7. TACROLIMUS [Suspect]
     Active Substance: TACROLIMUS
     Dosage: 1 MILLIGRAM, BID
     Route: 048
  8. PREDNISOLONE [Suspect]
     Active Substance: PREDNISOLONE
     Indication: Follicular lymphoma stage III
     Route: 048
  9. PREDNISOLONE [Suspect]
     Active Substance: PREDNISOLONE
     Route: 048
  10. PREDNISOLONE [Suspect]
     Active Substance: PREDNISOLONE
     Route: 048
  11. PREDNISOLONE [Suspect]
     Active Substance: PREDNISOLONE
     Route: 048
  12. PREDNISOLONE [Suspect]
     Active Substance: PREDNISOLONE
     Route: 048
  13. PREDNISOLONE [Suspect]
     Active Substance: PREDNISOLONE
     Route: 048
  14. PREDNISOLONE [Suspect]
     Active Substance: PREDNISOLONE
     Route: 048
  15. PREDNISOLONE [Suspect]
     Active Substance: PREDNISOLONE
     Route: 048
  16. PREDNISOLONE [Suspect]
     Active Substance: PREDNISOLONE
     Route: 048
  17. BUDESONIDE [Suspect]
     Active Substance: BUDESONIDE
     Indication: Follicular lymphoma stage III
     Route: 055
  18. BUDESONIDE [Suspect]
     Active Substance: BUDESONIDE
     Route: 055
  19. BUDESONIDE [Suspect]
     Active Substance: BUDESONIDE
     Route: 055
  20. BUDESONIDE [Suspect]
     Active Substance: BUDESONIDE
     Route: 055

REACTIONS (4)
  - Bronchopulmonary aspergillosis [Fatal]
  - Pulmonary embolism [Unknown]
  - Hypertransaminasaemia [Unknown]
  - Cytomegalovirus infection [Unknown]
